FAERS Safety Report 5527483-8 (Version None)
Quarter: 2007Q4

REPORT INFORMATION
  Report Type: 
  Country: None (occurrence: None)
  Receive Date: 20071128
  Receipt Date: 20071119
  Transmission Date: 20080405
  Serious: Yes (Hospitalization)
  Sender: FDA-Public Use
  Company Number: PHHO2007TW19140

PATIENT
  Age: 24 Year
  Sex: Male
  Weight: 55 kg

DRUGS (4)
  1. AMN107 [Suspect]
     Indication: CHRONIC MYELOID LEUKAEMIA
     Dosage: 800MG DAILY
     Route: 048
     Dates: start: 20071114, end: 20071119
  2. HYDROXYUREA [Concomitant]
     Indication: LEUKOCYTOSIS
  3. ALLOPURINOL [Concomitant]
  4. STILNOX [Concomitant]
     Indication: INSOMNIA

REACTIONS (5)
  - ANAEMIA [None]
  - PYREXIA [None]
  - RASH [None]
  - THROMBOCYTOPENIA [None]
  - WOUND HAEMORRHAGE [None]
